FAERS Safety Report 8267441-6 (Version None)
Quarter: 2012Q2

REPORT INFORMATION
  Report Type: 
  Country: None (occurrence: None)
  Receive Date: 20120409
  Receipt Date: 20120402
  Transmission Date: 20120825
  Serious: Yes (Other)
  Sender: FDA-Public Use
  Company Number: BR-ABBOTT-12P-020-0918150-00

PATIENT
  Sex: Female

DRUGS (5)
  1. TRILEPTAL [Suspect]
     Indication: EPILEPSY
  2. CLOBAZAM [Concomitant]
     Indication: SLEEP DISORDER THERAPY
     Route: 048
  3. CLOBAZAM [Concomitant]
     Route: 048
  4. DEPAKOTE [Suspect]
     Indication: SYNCOPE
     Route: 048
     Dates: start: 20110701, end: 20120301
  5. DEPAKENE [Suspect]
     Indication: SYNCOPE
     Route: 048

REACTIONS (4)
  - DYSPNOEA [None]
  - SOMNOLENCE [None]
  - CHEST PAIN [None]
  - SYNCOPE [None]
